FAERS Safety Report 17261155 (Version 9)
Quarter: 2021Q3

REPORT INFORMATION
  Report Type: Report from Study
  Country: None (occurrence: CO)
  Receive Date: 20200113
  Receipt Date: 20210724
  Transmission Date: 20211014
  Serious: Yes (Hospitalization, Other)
  Sender: FDA-Public Use
  Company Number: CO-ABBVIE-20K-036-3229761-00

PATIENT
  Age: 53 Year
  Sex: Male
  Weight: 107 kg

DRUGS (12)
  1. HUMIRA [Suspect]
     Active Substance: ADALIMUMAB
     Indication: ANKYLOSING SPONDYLITIS
     Route: 058
  2. HUMIRA [Suspect]
     Active Substance: ADALIMUMAB
     Indication: ANKYLOSING SPONDYLITIS
     Route: 058
     Dates: end: 20191223
  3. TRAMADOL. [Concomitant]
     Active Substance: TRAMADOL
     Indication: PAIN
     Dosage: 12 DROPS WHEN THERE IS PAIN
     Route: 048
  4. HUMIRA [Suspect]
     Active Substance: ADALIMUMAB
     Route: 058
     Dates: start: 20170218
  5. COVID?19 VACCINE NOS. [Suspect]
     Active Substance: COVID-19 VACCINE NOS
     Indication: COVID-19 IMMUNISATION
     Route: 030
     Dates: start: 202106
  6. NAPROXEN. [Concomitant]
     Active Substance: NAPROXEN
     Indication: PAIN
     Route: 048
  7. HUMIRA [Suspect]
     Active Substance: ADALIMUMAB
     Indication: ANKYLOSING SPONDYLITIS
     Route: 058
     Dates: start: 20101020
  8. HUMIRA [Suspect]
     Active Substance: ADALIMUMAB
     Indication: ANKYLOSING SPONDYLITIS
     Route: 058
  9. HUMIRA [Suspect]
     Active Substance: ADALIMUMAB
     Indication: ANKYLOSING SPONDYLITIS
     Route: 058
  10. HUMIRA [Suspect]
     Active Substance: ADALIMUMAB
  11. HUMIRA [Suspect]
     Active Substance: ADALIMUMAB
  12. TRAMADOL. [Concomitant]
     Active Substance: TRAMADOL
     Indication: PRODUCT USED FOR UNKNOWN INDICATION
     Route: 048

REACTIONS (27)
  - Back pain [Recovering/Resolving]
  - Gait disturbance [Recovering/Resolving]
  - Back pain [Recovering/Resolving]
  - Groin pain [Recovering/Resolving]
  - Discomfort [Recovering/Resolving]
  - Pyrexia [Recovered/Resolved]
  - Mass [Recovered/Resolved]
  - Discomfort [Not Recovered/Not Resolved]
  - Ankylosing spondylitis [Recovering/Resolving]
  - Arthralgia [Recovering/Resolving]
  - Malaise [Recovered/Resolved]
  - Arthritis [Recovering/Resolving]
  - Pain in extremity [Recovering/Resolving]
  - Headache [Recovered/Resolved]
  - Anger [Unknown]
  - Chest pain [Recovering/Resolving]
  - Pain [Not Recovered/Not Resolved]
  - Dysstasia [Unknown]
  - Arthralgia [Not Recovered/Not Resolved]
  - Pain in extremity [Recovering/Resolving]
  - Pain [Recovering/Resolving]
  - Mobility decreased [Unknown]
  - Application site pruritus [Recovered/Resolved]
  - Therapeutic response shortened [Recovering/Resolving]
  - Arthralgia [Recovering/Resolving]
  - Hypokinesia [Recovering/Resolving]
  - Pigmentation disorder [Recovering/Resolving]

NARRATIVE: CASE EVENT DATE: 201909
